FAERS Safety Report 7242647-3 (Version None)
Quarter: 2011Q1

REPORT INFORMATION
  Report Type: 
  Country: None (occurrence: None)
  Receive Date: 20110118
  Receipt Date: 20110103
  Transmission Date: 20110831
  Serious: Yes (Other)
  Sender: FDA-Public Use
  Company Number: 2010P1003480

PATIENT
  Age: 82 Year
  Sex: Male
  Weight: 99.7913 kg

DRUGS (12)
  1. PREV MEDS [Concomitant]
  2. WARFARIN [Concomitant]
  3. FENTANYL-50 [Suspect]
     Indication: ARTHRITIS
     Dosage: 50 MCG/HR;Q60H;TDER ; 50 MCG/HR;Q72H;TDER
     Route: 062
     Dates: start: 20090101
  4. FENTANYL-50 [Suspect]
     Indication: ARTHRITIS
     Dosage: 50 MCG/HR;Q60H;TDER ; 50 MCG/HR;Q72H;TDER
     Route: 062
     Dates: start: 20050401, end: 20090101
  5. COLACE [Concomitant]
  6. NEXIUM [Concomitant]
  7. SOTALOL HCL [Concomitant]
  8. VITAMNI D3 [Concomitant]
  9. SENNA LAX [Concomitant]
  10. CITALOPRAM [Concomitant]
  11. TRAMADOL [Concomitant]
  12. MULTI-VITAMIN [Concomitant]

REACTIONS (9)
  - ATRIAL FLUTTER [None]
  - ABDOMINAL PAIN UPPER [None]
  - DYSPHAGIA [None]
  - NASOPHARYNGITIS [None]
  - ATRIAL FIBRILLATION [None]
  - ROTATOR CUFF SYNDROME [None]
  - ANXIETY [None]
  - HYPOPHAGIA [None]
  - DIARRHOEA [None]
